FAERS Safety Report 19320259 (Version 2)
Quarter: 2021Q3

REPORT INFORMATION
  Report Type: Report from Study
  Country: DE (occurrence: DE)
  Receive Date: 20210527
  Receipt Date: 20210804
  Transmission Date: 20211014
  Serious: Yes (Hospitalization)
  Sender: FDA-Public Use
  Company Number: NVSC2021DE088210

PATIENT
  Sex: Female
  Weight: 78 kg

DRUGS (5)
  1. BENURON [Concomitant]
     Active Substance: ACETAMINOPHEN
     Indication: GENERAL PHYSICAL HEALTH DETERIORATION
     Dosage: 500 MG, QD (2?2?2?2)
     Route: 048
     Dates: start: 20210415
  2. NOVAMINSULFON [Concomitant]
     Active Substance: METAMIZOLE
     Indication: GENERAL PHYSICAL HEALTH DETERIORATION
     Dosage: UNK, QD (2?2?2?2)
     Route: 048
     Dates: start: 20210415
  3. LETROZOLE. [Suspect]
     Active Substance: LETROZOLE
     Indication: BREAST CANCER METASTATIC
     Dosage: 2.5 MG, QD
     Route: 048
     Dates: start: 20191008
  4. PENICILLIN G [Concomitant]
     Active Substance: PENICILLIN G
     Indication: GENERAL PHYSICAL HEALTH DETERIORATION
     Dosage: UNK, Q4H (AMPULES)
     Route: 042
     Dates: start: 20210415
  5. KISQALI [Suspect]
     Active Substance: RIBOCICLIB
     Indication: BREAST CANCER METASTATIC
     Dosage: 600 MG, QD
     Route: 048
     Dates: start: 20191031

REACTIONS (2)
  - C-reactive protein increased [Unknown]
  - Erysipelas [Recovered/Resolved]

NARRATIVE: CASE EVENT DATE: 20210415
